FAERS Safety Report 23983126 (Version 4)
Quarter: 2024Q4

REPORT INFORMATION
  Report Type: Spontaneous
  Country: US (occurrence: US)
  Receive Date: 20240617
  Receipt Date: 20241227
  Transmission Date: 20250114
  Serious: No
  Sender: BRISTOL-MYERS SQUIBB COMPANY
  Company Number: US-BRISTOL-MYERS SQUIBB COMPANY-2024-096871

PATIENT
  Age: 35 Year
  Sex: Female

DRUGS (3)
  1. SPRYCEL [Suspect]
     Active Substance: DASATINIB
     Indication: Chronic myeloid leukaemia
     Route: 048
     Dates: start: 202405
  2. SPRYCEL [Suspect]
     Active Substance: DASATINIB
     Route: 048
     Dates: start: 202405
  3. SPRYCEL [Suspect]
     Active Substance: DASATINIB
     Route: 048
     Dates: start: 202405

REACTIONS (9)
  - Pain [Unknown]
  - Bone pain [Unknown]
  - Neuralgia [Unknown]
  - Rash [Unknown]
  - Brain fog [Unknown]
  - Nausea [Unknown]
  - Fatigue [Unknown]
  - Depression [Unknown]
  - Loss of personal independence in daily activities [Unknown]
